FAERS Safety Report 8339036-7 (Version None)
Quarter: 2012Q2

REPORT INFORMATION
  Report Type: 
  Country: None (occurrence: None)
  Receive Date: 20120502
  Receipt Date: 20120430
  Transmission Date: 20120825
  Serious: Yes (Death)
  Sender: FDA-Public Use
  Company Number: ADR-2011-11649

PATIENT
  Age: 53 Year
  Sex: Female

DRUGS (4)
  1. DILAUDID [Concomitant]
  2. CLONIDINE [Concomitant]
  3. BACLOFEN [Suspect]
     Dosage: 385.15 MCG/DAY
  4. BUPIVACAINE HCL [Concomitant]

REACTIONS (2)
  - RECTAL CANCER METASTATIC [None]
  - NEOPLASM PROGRESSION [None]
